FAERS Safety Report 15295710 (Version 1)
Quarter: 2018Q3

REPORT INFORMATION
  Report Type: Spontaneous
  Country: US (occurrence: US)
  Receive Date: 20180820
  Receipt Date: 20180820
  Transmission Date: 20181010
  Serious: No
  Sender: FDA-Public Use
  Company Number: US-SA-2018SA223811

PATIENT
  Sex: Female

DRUGS (1)
  1. RANITIDINE. [Suspect]
     Active Substance: RANITIDINE
     Indication: GLYCOGEN STORAGE DISEASE TYPE VI

REACTIONS (3)
  - Weight gain poor [Unknown]
  - Drug ineffective [Unknown]
  - Weight decreased [Unknown]
